FAERS Safety Report 5230429-3 (Version None)
Quarter: 2007Q1

REPORT INFORMATION
  Report Type: 
  Country: None (occurrence: None)
  Receive Date: 20070206
  Receipt Date: 20070201
  Transmission Date: 20070707
  Serious: Yes (Hospitalization)
  Sender: FDA-Public Use
  Company Number: FR-AVENTIS-200614565FR

PATIENT
  Age: 24 Year
  Sex: Female

DRUGS (2)
  1. RIFATER [Suspect]
     Indication: LYMPH NODE TUBERCULOSIS
     Route: 048
     Dates: start: 20051216, end: 20060116
  2. RIFATER [Suspect]
     Route: 048
     Dates: start: 20060222, end: 20060516

REACTIONS (3)
  - ABORTION SPONTANEOUS [None]
  - DRUG EXPOSURE DURING PREGNANCY [None]
  - PLACENTAL DISORDER [None]
